FAERS Safety Report 19731291 (Version 2)
Quarter: 2021Q3

REPORT INFORMATION
  Report Type: Spontaneous
  Country: IT (occurrence: IT)
  Receive Date: 20210820
  Receipt Date: 20210820
  Transmission Date: 20211014
  Serious: No
  Sender: FDA-Public Use
  Company Number: IT-JAZZ-2020-IT-015465

PATIENT

DRUGS (1)
  1. VYXEOS [Suspect]
     Active Substance: CYTARABINE\DAUNORUBICIN
     Indication: PRODUCT USED FOR UNKNOWN INDICATION
     Dosage: 44MG/100MG POWDER FOR CONCENTRATE FOR SOLUTION FOR INFUSION
     Route: 065

REACTIONS (1)
  - Off label use [Unknown]
